FAERS Safety Report 17942628 (Version 1)
Quarter: 2020Q2

REPORT INFORMATION
  Report Type: Report from Study
  Country: CA (occurrence: CA)
  Receive Date: 20200625
  Receipt Date: 20200625
  Transmission Date: 20200714
  Serious: Yes (Death, Disabling, Other)
  Sender: FDA-Public Use
  Company Number: CA-ACCORD-186561

PATIENT
  Age: 69 Year
  Sex: Female

DRUGS (3)
  1. QUETIAPINE. [Suspect]
     Active Substance: QUETIAPINE
     Indication: PRODUCT USED FOR UNKNOWN INDICATION
     Route: 048
  2. CLOZAPINE. [Suspect]
     Active Substance: CLOZAPINE
     Indication: SCHIZOPHRENIA
     Route: 048
  3. QUETIAPINE. [Suspect]
     Active Substance: QUETIAPINE
     Indication: PRODUCT USED FOR UNKNOWN INDICATION
     Route: 048

REACTIONS (12)
  - Bronchitis [Fatal]
  - Hallucination [Fatal]
  - Aggression [Fatal]
  - Dehydration [Fatal]
  - Dysphagia [Fatal]
  - Tremor [Fatal]
  - Neutrophil count decreased [Fatal]
  - Extrapyramidal disorder [Fatal]
  - Gait inability [Fatal]
  - Depression [Fatal]
  - Death [Fatal]
  - Paranoia [Fatal]
